FAERS Safety Report 5761963-5 (Version None)
Quarter: 2008Q2

REPORT INFORMATION
  Report Type: 
  Country: None (occurrence: None)
  Receive Date: 20080603
  Receipt Date: 20080521
  Transmission Date: 20081010
  Serious: Yes (Hospitalization)
  Sender: FDA-Public Use
  Company Number: 2008AL005601

PATIENT
  Age: 15 Month
  Sex: Female

DRUGS (6)
  1. FEVERALL (ACETAMINOPHEN RECTAL SUPPOSITORIES) 120 MG (ALPHARMA) (FEVER [Suspect]
     Indication: ADENOVIRUS INFECTION
  2. FEVERALL (ACETAMINOPHEN RECTAL SUPPOSITORIES) 120 MG (ALPHARMA) (FEVER [Suspect]
     Indication: PYREXIA
  3. VALPROIC ACID [Concomitant]
  4. TOPIRAMATE [Concomitant]
  5. ETHOSUXIMIDE [Concomitant]
  6. CLONAZEPAM [Concomitant]

REACTIONS (3)
  - ALANINE AMINOTRANSFERASE INCREASED [None]
  - AMMONIA INCREASED [None]
  - ASPARTATE AMINOTRANSFERASE INCREASED [None]
